FAERS Safety Report 7429994-7 (Version None)
Quarter: 2011Q2

REPORT INFORMATION
  Report Type: 
  Country: None (occurrence: None)
  Receive Date: 20110421
  Receipt Date: 20110418
  Transmission Date: 20111010
  Serious: Yes (Other)
  Sender: FDA-Public Use
  Company Number: US-ABBOTT-11P-163-0720062-00

PATIENT
  Sex: Female

DRUGS (3)
  1. UNKNOWN DIABETES MEDICATION [Concomitant]
     Indication: PRODUCT USED FOR UNKNOWN INDICATION
  2. HUMIRA [Suspect]
     Indication: RHEUMATOID ARTHRITIS
     Route: 058
     Dates: start: 20090101
  3. INSULIN [Concomitant]
     Indication: PRODUCT USED FOR UNKNOWN INDICATION

REACTIONS (8)
  - APHTHOUS STOMATITIS [None]
  - FUNGAL SKIN INFECTION [None]
  - INSULIN-REQUIRING TYPE 2 DIABETES MELLITUS [None]
  - PRURITUS [None]
  - STOMATITIS [None]
  - WOUND SECRETION [None]
  - SKIN BURNING SENSATION [None]
  - LUNG NEOPLASM MALIGNANT [None]
